FAERS Safety Report 20378989 (Version 2)
Quarter: 2022Q2

REPORT INFORMATION
  Report Type: Spontaneous
  Country: GB (occurrence: None)
  Receive Date: 20220126
  Receipt Date: 20220517
  Transmission Date: 20220721
  Serious: Yes (Other)
  Sender: FDA-Public Use
  Company Number: GB-ROCHE-3006949

PATIENT
  Age: 49 Year
  Sex: Female

DRUGS (2)
  1. PHESGO [Suspect]
     Active Substance: HYALURONIDASE-ZZXF\PERTUZUMAB\TRASTUZUMAB
     Indication: Product used for unknown indication
     Dosage: DOSE -600/600?STRENGTH - 600/600
     Route: 065
  2. PHESGO [Suspect]
     Active Substance: HYALURONIDASE-ZZXF\PERTUZUMAB\TRASTUZUMAB
     Dosage: DOSE 600/600?STRENGTH - 600/600?CYCLE 6
     Route: 058
     Dates: start: 202111

REACTIONS (2)
  - Clostridium difficile infection [Recovered/Resolved]
  - Radiation injury [Unknown]

NARRATIVE: CASE EVENT DATE: 20220114
